FAERS Safety Report 11609602 (Version 1)
Quarter: 2015Q3

REPORT INFORMATION
  Report Type: Spontaneous
  Country: US (occurrence: US)
  Receive Date: 20150916
  Receipt Date: 20150916
  Transmission Date: 20151125
  Serious: No
  Sender: FDA-Public Use
  Company Number: US-ELI_LILLY_AND_COMPANY-US201309006862

PATIENT
  Age: 24 Year
  Sex: Female

DRUGS (2)
  1. HUMALOG [Suspect]
     Active Substance: INSULIN LISPRO
     Indication: TYPE 1 DIABETES MELLITUS
     Dosage: UNK, OTHER
  2. LANTUS [Concomitant]
     Active Substance: INSULIN GLARGINE
     Dosage: 28 U, EACH EVENING

REACTIONS (5)
  - Drug dose omission [Unknown]
  - Pollakiuria [Unknown]
  - Blood glucose increased [Unknown]
  - Weight decreased [Unknown]
  - Thirst [Unknown]

NARRATIVE: CASE EVENT DATE: 201309
